FAERS Safety Report 8354977-2 (Version None)
Quarter: 2012Q2

REPORT INFORMATION
  Report Type: 
  Country: None (occurrence: None)
  Receive Date: 20120511
  Receipt Date: 20120503
  Transmission Date: 20120825
  Serious: Yes (Other)
  Sender: FDA-Public Use
  Company Number: US-JNJFOC-20120506651

PATIENT
  Sex: Female

DRUGS (4)
  1. OXYCODONE HCL [Concomitant]
     Route: 065
  2. NUCYNTA ER [Suspect]
     Indication: PRODUCT USED FOR UNKNOWN INDICATION
     Route: 048
  3. NUCYNTA ER [Suspect]
     Route: 048
  4. NUCYNTA ER [Suspect]
     Route: 048

REACTIONS (4)
  - DEPRESSION [None]
  - AGITATION [None]
  - SOMNOLENCE [None]
  - ADVERSE DRUG REACTION [None]
